FAERS Safety Report 11044322 (Version 7)
Quarter: 2015Q3

REPORT INFORMATION
  Report Type: Report from Study
  Country: PL (occurrence: PL)
  Receive Date: 20150417
  Receipt Date: 20150730
  Transmission Date: 20151125
  Serious: Yes (Death)
  Sender: FDA-Public Use
  Company Number: PL-PFIZER INC-2015129020

PATIENT
  Age: 59 Year
  Sex: Male
  Weight: 78 kg

DRUGS (10)
  1. SPIRIVA [Concomitant]
     Active Substance: TIOTROPIUM BROMIDE MONOHYDRATE
     Indication: CHRONIC OBSTRUCTIVE PULMONARY DISEASE
     Dosage: 18 UNK, DAILY
     Route: 055
     Dates: start: 201102, end: 201504
  2. PARACETAMOL [Concomitant]
     Active Substance: ACETAMINOPHEN
     Indication: RHEUMATOID ARTHRITIS
     Dosage: 500 UNK, AS NEEDED
     Route: 048
     Dates: start: 20111026, end: 2015
  3. OLFEN SR [Concomitant]
     Indication: RHEUMATOID ARTHRITIS
     Dosage: 75 UNK, 2X/DAY
     Route: 048
     Dates: start: 20120103, end: 201504
  4. METEX [Concomitant]
     Active Substance: METFORMIN HYDROCHLORIDE
     Indication: RHEUMATOID ARTHRITIS
     Dosage: 20 UNK, WEEKLY
     Route: 058
     Dates: start: 20140517, end: 201504
  5. OXODIL [Concomitant]
     Active Substance: FORMOTEROL FUMARATE
     Indication: CHRONIC OBSTRUCTIVE PULMONARY DISEASE
     Dosage: 12 UNK, 2X/DAY
     Route: 055
     Dates: start: 201102, end: 201504
  6. ATROVENT [Concomitant]
     Active Substance: IPRATROPIUM BROMIDE
     Indication: CHRONIC OBSTRUCTIVE PULMONARY DISEASE
     Dosage: 40 UNK, 4X/DAY
     Route: 055
     Dates: start: 201102, end: 201504
  7. TOFACITINIB CITRATE [Suspect]
     Active Substance: TOFACITINIB CITRATE
     Indication: RHEUMATOID ARTHRITIS
     Dosage: 10 MG, 2X/DAY: REGIMENT 2X2
     Route: 048
     Dates: start: 20141114
  8. ENCORTON [Concomitant]
     Active Substance: PREDNISONE
     Indication: RHEUMATOID ARTHRITIS
     Dosage: 5 UNK, DAILY
     Route: 048
     Dates: start: 20140517, end: 201504
  9. ACIDUM FOLICUM [Concomitant]
     Active Substance: FOLIC ACID
     Indication: RHEUMATOID ARTHRITIS
     Dosage: 15 UNK, WEEKLY
     Route: 048
     Dates: start: 20091124, end: 201504
  10. OSTENIL [Concomitant]
     Indication: OSTEOPOROSIS
     Dosage: 70 WEEKLY
     Route: 048
     Dates: start: 20111011, end: 201504

REACTIONS (1)
  - Sudden death [Fatal]

NARRATIVE: CASE EVENT DATE: 20150409
